FAERS Safety Report 21226355 (Version 1)
Quarter: 2022Q3

REPORT INFORMATION
  Report Type: Spontaneous
  Country: FR (occurrence: FR)
  Receive Date: 20220818
  Receipt Date: 20220818
  Transmission Date: 20221027
  Serious: Yes (Other)
  Sender: FDA-Public Use
  Company Number: FR-AMGEN-FRASP2022135952

PATIENT
  Sex: Female

DRUGS (1)
  1. TRASTUZUMAB [Suspect]
     Active Substance: TRASTUZUMAB
     Indication: HER2 positive breast cancer
     Dosage: UNK
     Route: 065

REACTIONS (10)
  - Abortion spontaneous [Unknown]
  - Ectopic pregnancy [Unknown]
  - Gestational diabetes [Unknown]
  - Cytomegalovirus infection [Unknown]
  - Peritonitis [Unknown]
  - Exposure during pregnancy [Unknown]
  - Abortion induced [Unknown]
  - Premature delivery [Unknown]
  - Pre-eclampsia [Unknown]
  - Twin pregnancy [Unknown]
